FAERS Safety Report 6093832-8 (Version None)
Quarter: 2009Q1

REPORT INFORMATION
  Report Type: 
  Country: None (occurrence: None)
  Receive Date: 20090226
  Receipt Date: 20090217
  Transmission Date: 20090719
  Serious: Yes (Hospitalization)
  Sender: FDA-Public Use
  Company Number: GB-AVENTIS-200911663GDDC

PATIENT
  Age: 21 Year
  Sex: Male

DRUGS (2)
  1. LANTUS [Suspect]
     Route: 058
     Dates: start: 20080601
  2. ESOMEPRAZOLE MAGNESIUM [Concomitant]

REACTIONS (4)
  - APPARENT DEATH [None]
  - GENERAL PHYSICAL HEALTH DETERIORATION [None]
  - HYPOGLYCAEMIA [None]
  - PRODUCT COUNTERFEIT [None]
